FAERS Safety Report 12394445 (Version 1)
Quarter: 2016Q2

REPORT INFORMATION
  Report Type: Spontaneous
  Country: JP (occurrence: JP)
  Receive Date: 20160523
  Receipt Date: 20160523
  Transmission Date: 20160815
  Serious: Yes (Hospitalization)
  Sender: FDA-Public Use
  Company Number: JP-TEVA-661621ISR

PATIENT
  Age: 55 Year
  Sex: Male
  Weight: 53.7 kg

DRUGS (1)
  1. DILTIAZEM [Suspect]
     Active Substance: DILTIAZEM
     Dosage: 60 DILTIAZEM 100 MG TABLETS

REACTIONS (2)
  - Renal tubular necrosis [Recovered/Resolved]
  - Overdose [Recovered/Resolved]
